FAERS Safety Report 23739727 (Version 1)
Quarter: 2024Q2

REPORT INFORMATION
  Report Type: Spontaneous
  Country: PT (occurrence: PT)
  Receive Date: 20240414
  Receipt Date: 20240414
  Transmission Date: 20240717
  Serious: Yes (Other)
  Sender: FDA-Public Use
  Company Number: PT-ROCHE-3471848

PATIENT
  Age: 67 Year
  Sex: Female
  Weight: 54.7 kg

DRUGS (1)
  1. DOCETAXEL [Suspect]
     Active Substance: DOCETAXEL\DOCETAXEL ANHYDROUS
     Indication: Neoplasm malignant
     Dosage: 3 WEEKS, ON 29/NOV/2022, RECEIVED MOST RECENT DOSE 93.4 MG OF DOCETAXEL PRIOR TO AE/SAE ONSET.
     Route: 042
     Dates: start: 20220906, end: 20230103

REACTIONS (2)
  - Neutropenia [Recovered/Resolved]
  - Neutrophilia [Recovered/Resolved]

NARRATIVE: CASE EVENT DATE: 20221220
